FAERS Safety Report 16662308 (Version 2)
Quarter: 2020Q1

REPORT INFORMATION
  Report Type: Report from Study
  Country: US (occurrence: US)
  Receive Date: 20190802
  Receipt Date: 20200129
  Transmission Date: 20200409
  Serious: No
  Sender: FDA-Public Use
  Company Number: US-EXELIXIS-CABO-18017802

PATIENT
  Age: 62 Year
  Sex: Male

DRUGS (4)
  1. CABOMETYX [Suspect]
     Active Substance: CABOZANTINIB S-MALATE
     Indication: PRODUCT USED FOR UNKNOWN INDICATION
     Dosage: UNK
     Dates: start: 20181101
  2. CITALOPRAM [Concomitant]
     Active Substance: CITALOPRAM HYDROBROMIDE
  3. OLMESARTAN [Concomitant]
     Active Substance: OLMESARTAN
  4. INVOKANA [Concomitant]
     Active Substance: CANAGLIFLOZIN

REACTIONS (2)
  - Laryngitis [Not Recovered/Not Resolved]
  - Thyroid disorder [Unknown]

NARRATIVE: CASE EVENT DATE: 20181217
